FAERS Safety Report 10253312 (Version 2)
Quarter: 2014Q2

REPORT INFORMATION
  Report Type: Spontaneous
  Country: US (occurrence: US)
  Receive Date: 20140623
  Receipt Date: 20140623
  Transmission Date: 20141212
  Serious: No
  Sender: FDA-Public Use
  Company Number: US-SHIONOGI, INC-2014000150

PATIENT
  Age: 60 Year
  Sex: Female
  Weight: 69.39 kg

DRUGS (11)
  1. OSPHENA [Suspect]
     Indication: VAGINAL DISCHARGE
     Dosage: UNK, DAILY
     Route: 048
     Dates: start: 20131121, end: 201402
  2. OSPHENA [Suspect]
     Dosage: UNK
     Route: 065
     Dates: start: 201402, end: 20140215
  3. LISINOPRIL [Concomitant]
     Indication: HYPERTENSION
     Dosage: 20 MG, UNK
     Route: 065
  4. PRILOSEC                           /00661201/ [Concomitant]
     Indication: GASTROOESOPHAGEAL REFLUX DISEASE
     Dosage: UNK
     Route: 065
  5. LUTEIN                             /01638501/ [Concomitant]
     Indication: PRODUCT USED FOR UNKNOWN INDICATION
     Dosage: UNK
     Route: 065
  6. NASOCORT [Concomitant]
     Indication: SEASONAL ALLERGY
     Dosage: UNK, PRN
     Route: 065
  7. CALTRATE                           /00944201/ [Concomitant]
     Indication: PRODUCT USED FOR UNKNOWN INDICATION
     Dosage: 600 MG, UNK
     Route: 065
  8. METAMUCIL                          /00029101/ [Concomitant]
     Indication: PRODUCT USED FOR UNKNOWN INDICATION
     Dosage: UNK, QD
     Route: 065
  9. MULTIVITAMIN                       /00097801/ [Concomitant]
     Indication: PRODUCT USED FOR UNKNOWN INDICATION
     Dosage: UNK, QD
     Route: 065
  10. VITAMIN E                          /00110501/ [Concomitant]
     Indication: PRODUCT USED FOR UNKNOWN INDICATION
     Dosage: UNK/ TWICE A WEEK
     Route: 065
  11. VAGIFEM [Concomitant]
     Indication: PRODUCT USED FOR UNKNOWN INDICATION
     Dosage: UNK
     Route: 065
     Dates: end: 201411

REACTIONS (3)
  - Pharyngeal oedema [Unknown]
  - Throat tightness [Unknown]
  - Off label use [None]
